FAERS Safety Report 23881849 (Version 1)
Quarter: 2024Q2

REPORT INFORMATION
  Report Type: Spontaneous
  Country: BA (occurrence: BA)
  Receive Date: 20240521
  Receipt Date: 20240521
  Transmission Date: 20240716
  Serious: Yes (Other)
  Sender: FDA-Public Use
  Company Number: BA-002147023-NVSC2024BA104885

PATIENT

DRUGS (4)
  1. RUXOLITINIB [Suspect]
     Active Substance: RUXOLITINIB
     Indication: Product used for unknown indication
     Dosage: 20 MG (2X20MG)
     Route: 065
     Dates: start: 20210908
  2. RUXOLITINIB [Suspect]
     Active Substance: RUXOLITINIB
     Dosage: 30 MG (2X15MG)
     Route: 065
     Dates: start: 20220705
  3. RUXOLITINIB [Suspect]
     Active Substance: RUXOLITINIB
     Dosage: 20 MG (2X10MG)
     Route: 065
     Dates: start: 20230209
  4. RUXOLITINIB [Suspect]
     Active Substance: RUXOLITINIB
     Dosage: 20 MG (2X10MG)
     Route: 065
     Dates: start: 202310

REACTIONS (5)
  - Bone pain [Unknown]
  - Thrombocytosis [Unknown]
  - Cyst [Unknown]
  - Sacroiliac joint dysfunction [Unknown]
  - Syncope [Unknown]

NARRATIVE: CASE EVENT DATE: 20240408
